FAERS Safety Report 13657727 (Version 2)
Quarter: 2017Q2

REPORT INFORMATION
  Report Type: Spontaneous
  Country: TW (occurrence: TW)
  Receive Date: 20170615
  Receipt Date: 20170628
  Transmission Date: 20170830
  Serious: Yes (Hospitalization, Other)
  Sender: FDA-Public Use
  Company Number: TW-AMGEN-TWNSP2017091571

PATIENT
  Age: 60 Year
  Sex: Female

DRUGS (5)
  1. PLAQUENIL [Concomitant]
     Active Substance: HYDROXYCHLOROQUINE SULFATE
     Dosage: 1 DF, 2X/DAY (BID)
     Route: 048
  2. ENBREL [Suspect]
     Active Substance: ETANERCEPT
     Dosage: 25 MG, 2X/WEEK (BIW)
     Route: 058
     Dates: start: 200910
  3. MTX [Concomitant]
     Active Substance: METHOTREXATE SODIUM
     Dosage: 4 DF, WEEKLY
     Route: 048
     Dates: end: 2017
  4. SALAZINE [Concomitant]
     Active Substance: SULFASALAZINE
     Dosage: 1 DF, 3X/DAY (TID)
     Route: 048
  5. ENBREL [Suspect]
     Active Substance: ETANERCEPT
     Indication: RHEUMATOID ARTHRITIS
     Dosage: 25 MG, CYCLIC EVERY 2 WEEKS
     Route: 058
     Dates: start: 20160427, end: 201705

REACTIONS (5)
  - Mouth ulceration [Recovering/Resolving]
  - Chest discomfort [Recovering/Resolving]
  - Wheezing [Recovering/Resolving]
  - Pneumonia [Recovering/Resolving]
  - Cough [Recovering/Resolving]

NARRATIVE: CASE EVENT DATE: 201705
